FAERS Safety Report 8379861-X (Version None)
Quarter: 2012Q2

REPORT INFORMATION
  Report Type: 
  Country: None (occurrence: None)
  Receive Date: 20120523
  Receipt Date: 20120511
  Transmission Date: 20120825
  Serious: Yes (Other)
  Sender: FDA-Public Use
  Company Number: JP-PFIZER INC-2012122818

PATIENT
  Age: 65 Year
  Sex: Female

DRUGS (4)
  1. ETHAMBUTOL HYDROCHLORIDE [Suspect]
     Dosage: UNK
     Route: 048
  2. CLARITHROMYCIN [Suspect]
     Dosage: UNK
     Route: 048
  3. LIPITOR [Suspect]
     Dosage: 10 MG, DAILY
     Route: 048
  4. RIFAMPICIN [Suspect]
     Dosage: UNK
     Route: 048

REACTIONS (2)
  - GLUCOSE TOLERANCE IMPAIRED [None]
  - GLYCOSYLATED HAEMOGLOBIN INCREASED [None]
